FAERS Safety Report 6361134-8 (Version None)
Quarter: 2009Q3

REPORT INFORMATION
  Report Type: 
  Country: None (occurrence: None)
  Receive Date: 20090918
  Receipt Date: 20090907
  Transmission Date: 20100115
  Serious: Yes (Other)
  Sender: FDA-Public Use
  Company Number: IE-WYE-H10934909

PATIENT
  Sex: Male

DRUGS (6)
  1. PROTIUM [Suspect]
     Indication: HELICOBACTER GASTRITIS
     Route: 048
     Dates: start: 20090812, end: 20090819
  2. MAGNESIUM CARBONATE [Concomitant]
  3. CALCIUM CARBONATE [Concomitant]
  4. SODIUM BICARBONATE IN PLASTIC CONTAINER [Concomitant]
  5. CLOROM [Suspect]
     Route: 048
     Dates: start: 20090812, end: 20090819
  6. AMOXICILLIN [Suspect]
     Indication: HELICOBACTER GASTRITIS
     Route: 048
     Dates: start: 20090812, end: 20090819

REACTIONS (5)
  - GLOSSODYNIA [None]
  - LIP SWELLING [None]
  - OROPHARYNGEAL PAIN [None]
  - PARAESTHESIA [None]
  - SWOLLEN TONGUE [None]
